FAERS Safety Report 19587725 (Version 1)
Quarter: 2021Q3

REPORT INFORMATION
  Report Type: Report from Study
  Country: US (occurrence: US)
  Receive Date: 20210721
  Receipt Date: 20210721
  Transmission Date: 20211014
  Serious: Yes (Hospitalization)
  Sender: FDA-Public Use
  Company Number: US-BRISTOL-MYERS SQUIBB COMPANY-BMS-2021-067768

PATIENT
  Age: 88 Year
  Sex: Female

DRUGS (3)
  1. DASATINIB. [Suspect]
     Active Substance: DASATINIB
     Indication: PRODUCT USED FOR UNKNOWN INDICATION
     Dosage: UNK
     Route: 065
     Dates: start: 202104
  2. DASATINIB. [Suspect]
     Active Substance: DASATINIB
     Dosage: 70 MILLIGRAM
     Route: 065
  3. DASATINIB. [Suspect]
     Active Substance: DASATINIB
     Dosage: 50 MILLIGRAM
     Route: 065

REACTIONS (3)
  - Amnesia [Unknown]
  - Platelet count decreased [Unknown]
  - White blood cell count increased [Unknown]
